FAERS Safety Report 4279271-0 (Version None)
Quarter: 2004Q1

REPORT INFORMATION
  Report Type: 
  Country: None (occurrence: None)
  Receive Date: 20040123
  Receipt Date: 20040115
  Transmission Date: 20041129
  Serious: Yes (Hospitalization)
  Sender: FDA-Public Use
  Company Number: ZONI001300

PATIENT
  Age: 42 Year
  Sex: Female

DRUGS (1)
  1. ZONEGRAN [Suspect]
     Indication: BIPOLAR DISORDER
     Dosage: 600 MG DAILY ORAL
     Route: 048
     Dates: start: 20031201, end: 20031201

REACTIONS (4)
  - DEPRESSION [None]
  - HEAT RASH [None]
  - HYPOTHYROIDISM [None]
  - SKIN LESION [None]
